FAERS Safety Report 13905529 (Version 1)
Quarter: 2017Q3

REPORT INFORMATION
  Report Type: Spontaneous
  Country: US (occurrence: US)
  Receive Date: 20170825
  Receipt Date: 20170825
  Transmission Date: 20171127
  Serious: Yes (Life-Threatening, Hospitalization, Other)
  Sender: FDA-Public Use
  Company Number: US-WEST-WARD PHARMACEUTICALS CORP.-US-H14001-17-03090

PATIENT
  Age: 10 Month
  Sex: Female

DRUGS (1)
  1. OXYCODONE [Suspect]
     Active Substance: OXYCODONE
     Indication: PRODUCT USED FOR UNKNOWN INDICATION
     Route: 048

REACTIONS (5)
  - Toxicity to various agents [Recovered/Resolved]
  - Respiratory failure [Recovered/Resolved]
  - Brain oedema [Recovered/Resolved]
  - Accidental overdose [Recovered/Resolved]
  - Accidental exposure to product [Recovered/Resolved]
